FAERS Safety Report 7015151-5 (Version None)
Quarter: 2010Q3

REPORT INFORMATION
  Report Type: 
  Country: None (occurrence: None)
  Receive Date: 20100927
  Receipt Date: 20090915
  Transmission Date: 20110219
  Serious: No
  Sender: FDA-Public Use
  Company Number: US-ASTRAZENECA-2009SE13719

PATIENT
  Age: 81 Year
  Sex: Female
  Weight: 59.4 kg

DRUGS (8)
  1. ARIMIDEX [Suspect]
     Indication: BREAST CANCER
     Route: 048
     Dates: start: 20090701
  2. THYROID MEDICATION [Concomitant]
  3. HIGH BLOOD PRESSURE MED [Concomitant]
  4. HIGH CHOLESTEROL MED [Concomitant]
  5. POTASSIUM [Concomitant]
  6. MULTI-VITAMIN [Concomitant]
  7. ASCORBIC ACID [Concomitant]
  8. FOLIC ACID [Concomitant]

REACTIONS (6)
  - CERVICOBRACHIAL SYNDROME [None]
  - CHILLS [None]
  - HOT FLUSH [None]
  - HYPERHIDROSIS [None]
  - PRODUCTIVE COUGH [None]
  - VIRAL UPPER RESPIRATORY TRACT INFECTION [None]
